FAERS Safety Report 6845759-9 (Version None)
Quarter: 2010Q3

REPORT INFORMATION
  Report Type: 
  Country: None (occurrence: None)
  Receive Date: 20100715
  Receipt Date: 20080114
  Transmission Date: 20110219
  Serious: No
  Sender: FDA-Public Use
  Company Number: US-PFIZER INC-2007070884

PATIENT
  Sex: Male
  Weight: 93.9 kg

DRUGS (6)
  1. CHANTIX [Suspect]
     Indication: SMOKING CESSATION THERAPY
     Route: 048
     Dates: start: 20070311, end: 20070801
  2. CHANTIX [Suspect]
     Indication: TOBACCO USER
  3. CHANTIX [Suspect]
     Indication: BENIGN PROSTATIC HYPERPLASIA
  4. LIPITOR [Concomitant]
     Indication: BLOOD CHOLESTEROL INCREASED
     Dates: start: 20041212
  5. PAXIL [Concomitant]
     Dates: start: 20041230
  6. NEXIUM [Concomitant]
     Dates: start: 20041129

REACTIONS (7)
  - ANXIETY [None]
  - DRUG WITHDRAWAL SYNDROME [None]
  - DYSURIA [None]
  - MICTURITION URGENCY [None]
  - PROSTATIC DISORDER [None]
  - RESTLESSNESS [None]
  - URINE OUTPUT DECREASED [None]
